FAERS Safety Report 8089740-3 (Version None)
Quarter: 2012Q1

REPORT INFORMATION
  Report Type: 
  Country: None (occurrence: None)
  Receive Date: 20120128
  Receipt Date: 20110809
  Transmission Date: 20120608
  Serious: Yes (Hospitalization)
  Sender: FDA-Public Use
  Company Number: US-ABBOTT-11P-163-0836154-00

PATIENT
  Sex: Male
  Weight: 61.29 kg

DRUGS (8)
  1. FENTANYL [Concomitant]
     Indication: PROCTALGIA
     Dosage: PATCH
  2. OMEPRAZOLE [Concomitant]
     Indication: GASTROOESOPHAGEAL REFLUX DISEASE
  3. HUMIRA [Suspect]
     Indication: CROHN'S DISEASE
     Dates: start: 20100701, end: 20100701
  4. OXYCODONE HCL [Concomitant]
     Indication: PROCTALGIA
  5. GABAPENTIN [Concomitant]
     Indication: PAIN
  6. HUMIRA [Suspect]
     Dates: start: 20100101, end: 20100101
  7. HUMIRA [Suspect]
     Dates: start: 20110624
  8. HUMIRA [Suspect]
     Dates: start: 20100901, end: 20101101

REACTIONS (2)
  - COUGH [None]
  - PNEUMONIA PRIMARY ATYPICAL [None]
